FAERS Safety Report 5710929-X (Version None)
Quarter: 2008Q2

REPORT INFORMATION
  Report Type: 
  Country: None (occurrence: None)
  Receive Date: 20080421
  Receipt Date: 20080409
  Transmission Date: 20081010
  Serious: Yes (Hospitalization, Other)
  Sender: FDA-Public Use
  Company Number: PHHY2008JP05220

PATIENT
  Age: 76 Year
  Sex: Female
  Weight: 48 kg

DRUGS (4)
  1. COMTAN [Suspect]
     Indication: DRUG EFFECT DECREASED
     Dosage: 300MG
     Route: 048
     Dates: start: 20070401
  2. LEVODOPA [Concomitant]
     Indication: PARKINSON'S DISEASE
     Dosage: 400MG
     Route: 048
  3. PRAMIPEXOLE DIHYDROCHLORIDE [Concomitant]
     Dosage: 1.5MG
     Route: 048
  4. DONEPEZIL HCL [Concomitant]
     Dosage: 5MG
     Route: 048
     Dates: start: 20070701, end: 20070801

REACTIONS (3)
  - DIARRHOEA [None]
  - PITTING OEDEMA [None]
  - WEIGHT DECREASED [None]
